FAERS Safety Report 8003689-3 (Version None)
Quarter: 2011Q4

REPORT INFORMATION
  Report Type: 
  Country: None (occurrence: None)
  Receive Date: 20111222
  Receipt Date: 20111216
  Transmission Date: 20120403
  Serious: Yes (Hospitalization, Disabling, Other)
  Sender: FDA-Public Use
  Company Number: NO-ABBOTT-10P-122-0689210-00

PATIENT
  Sex: Male

DRUGS (2)
  1. HUMIRA [Suspect]
     Indication: CROHN'S DISEASE
     Route: 058
     Dates: start: 20090519, end: 20100822
  2. PREDNISOLONE [Concomitant]
     Indication: CROHN'S DISEASE
     Dosage: 5-40 MG
     Dates: start: 19980101

REACTIONS (3)
  - OSTEOPOROTIC FRACTURE [None]
  - STAPHYLOCOCCAL INFECTION [None]
  - INTERVERTEBRAL DISCITIS [None]
